FAERS Safety Report 25592188 (Version 4)
Quarter: 2025Q4

REPORT INFORMATION
  Report Type: Report from Study
  Country: US (occurrence: US)
  Receive Date: 20250722
  Receipt Date: 20251105
  Transmission Date: 20260118
  Serious: Yes (Hospitalization, Other)
  Sender: ALNYLAM PHARMACEUTICALS
  Company Number: US-ALNYLAM PHARMACEUTICALS, INC.-ALN-2025-004442

PATIENT
  Age: 64 Year

DRUGS (1)
  1. OXLUMO [Suspect]
     Active Substance: LUMASIRAN
     Indication: Primary hyperoxaluria
     Dosage: UNK
     Route: 065

REACTIONS (8)
  - Complications of transplanted kidney [Unknown]
  - Cytomegalovirus viraemia [Unknown]
  - Seizure [Unknown]
  - Sepsis [Unknown]
  - Intentional dose omission [Unknown]
  - Intentional dose omission [Unknown]
  - Intentional dose omission [Unknown]
  - Chronic obstructive pulmonary disease [Unknown]
